FAERS Safety Report 23669436 (Version 1)
Quarter: 2024Q1

REPORT INFORMATION
  Report Type: Spontaneous
  Country: US (occurrence: US)
  Receive Date: 20240325
  Receipt Date: 20240325
  Transmission Date: 20240410
  Serious: No
  Sender: FDA-Public Use
  Company Number: US-PERRIGO-24US000947

PATIENT

DRUGS (1)
  1. NASONEX [Suspect]
     Active Substance: MOMETASONE FUROATE
     Indication: Upper-airway cough syndrome
     Dosage: UNKNOWN, UNKNOWN
     Route: 045

REACTIONS (4)
  - Confusional state [Recovered/Resolved]
  - Photophobia [Recovered/Resolved]
  - Feeling abnormal [Recovered/Resolved]
  - Drug effective for unapproved indication [Not Recovered/Not Resolved]
